FAERS Safety Report 6762000-6 (Version None)
Quarter: 2010Q2

REPORT INFORMATION
  Report Type: 
  Country: None (occurrence: None)
  Receive Date: 20100609
  Receipt Date: 20100526
  Transmission Date: 20101027
  Serious: Yes (Hospitalization)
  Sender: FDA-Public Use
  Company Number: PHHY2010DE05085

PATIENT
  Sex: Female
  Weight: 74 kg

DRUGS (14)
  1. ALISKIREN ALI+ [Suspect]
     Indication: HYPERTENSION
     Dosage: 150 MG/DAY
     Route: 048
     Dates: start: 20090128
  2. ACETYLSALICYLIC ACID [Concomitant]
     Indication: CORONARY ARTERY DISEASE
     Dosage: 100 MG/DAY
     Route: 048
     Dates: start: 20060830
  3. GLUCOBON [Concomitant]
     Indication: DIABETES MELLITUS
     Dosage: 850 MG/DAY
     Route: 048
     Dates: start: 20080317
  4. INSULIN [Concomitant]
     Indication: DIABETES MELLITUS
     Dosage: UNK
  5. ANTIHYPERTENSIVES [Concomitant]
  6. DILATREND [Concomitant]
     Indication: CARDIAC FAILURE
     Dosage: 25 MG/DAY
     Route: 048
     Dates: start: 20091216
  7. AMLODIPINE [Concomitant]
     Indication: RENAL FAILURE
     Dosage: 10 MG/DAY
     Route: 048
     Dates: start: 20091216
  8. AMLODIPINE [Concomitant]
     Indication: HYPERTENSION
  9. DELIX PLUS [Concomitant]
     Indication: HYPERTENSION
     Dosage: 5 MG/DAY
     Route: 048
     Dates: start: 20091216
  10. DELIX [Concomitant]
     Indication: HYPERTENSION
     Dosage: 5 MG/DAY
     Route: 048
     Dates: start: 20091216
  11. CYNT [Concomitant]
     Indication: HYPERTENSION
     Dosage: 0.3 MG/DAY
     Route: 048
     Dates: start: 20091216
  12. TORASEMIDE [Concomitant]
     Indication: MYOCARDIAL OEDEMA
     Dosage: 5 MG/DAY
     Route: 048
     Dates: start: 20091216
  13. SORTIS [Concomitant]
     Indication: HYPERLIPIDAEMIA
     Dosage: 20 MG/DAY
     Route: 048
     Dates: start: 20091216
  14. ANGIOTENSIN II ANTAGONISTS [Concomitant]
     Dosage: UNK

REACTIONS (2)
  - CHEST DISCOMFORT [None]
  - HYPERTENSION [None]
